FAERS Safety Report 17415802 (Version 3)
Quarter: 2020Q2

REPORT INFORMATION
  Report Type: Report from Study
  Country: US (occurrence: US)
  Receive Date: 20200213
  Receipt Date: 20200604
  Transmission Date: 20200713
  Serious: Yes (Other)
  Sender: FDA-Public Use
  Company Number: US-ACTELION-A-NJ2019-197627

PATIENT
  Sex: Female
  Weight: 97.96 kg

DRUGS (6)
  1. ADEMPAS [Suspect]
     Active Substance: RIOCIGUAT
     Indication: PRODUCT USED FOR UNKNOWN INDICATION
     Route: 065
  2. AMBRISENTAN [Concomitant]
     Active Substance: AMBRISENTAN
  3. UPTRAVI [Suspect]
     Active Substance: SELEXIPAG
     Indication: PULMONARY ARTERIAL HYPERTENSION
     Dosage: 1000 MCG, BID
     Route: 048
  4. UPTRAVI [Suspect]
     Active Substance: SELEXIPAG
     Dosage: 200 MCG, BID
     Route: 048
  5. ELIQUIS [Concomitant]
     Active Substance: APIXABAN
  6. UPTRAVI [Suspect]
     Active Substance: SELEXIPAG
     Dosage: 800 MCG, BID
     Route: 048

REACTIONS (14)
  - Oesophagitis [Not Recovered/Not Resolved]
  - Alopecia [Not Recovered/Not Resolved]
  - Food intolerance [Not Recovered/Not Resolved]
  - Condition aggravated [Unknown]
  - Weight decreased [Unknown]
  - Impaired gastric emptying [Unknown]
  - Vomiting [Not Recovered/Not Resolved]
  - Bronchitis [Unknown]
  - Headache [Unknown]
  - Nausea [Unknown]
  - Dyspepsia [Unknown]
  - Kidney infection [Unknown]
  - Gastrooesophageal reflux disease [Not Recovered/Not Resolved]
  - Syncope [Unknown]
